FAERS Safety Report 7083305-8 (Version None)
Quarter: 2010Q4

REPORT INFORMATION
  Report Type: 
  Country: None (occurrence: None)
  Receive Date: 20101104
  Receipt Date: 20101025
  Transmission Date: 20110411
  Serious: No
  Sender: FDA-Public Use
  Company Number: PHHY2010TW17727

PATIENT
  Sex: Male

DRUGS (2)
  1. TASIGNA [Suspect]
     Indication: CHRONIC MYELOID LEUKAEMIA
     Dosage: 800 MG DAILY
     Route: 048
     Dates: start: 20080911, end: 20101025
  2. SPRYCEL [Suspect]
     Indication: CHRONIC MYELOID LEUKAEMIA
     Dosage: 100 MG, UNK
     Dates: start: 20101026

REACTIONS (7)
  - DRUG EFFECT DECREASED [None]
  - JAUNDICE [None]
  - MALAISE [None]
  - MYALGIA [None]
  - ONYCHOMYCOSIS [None]
  - SKIN SWELLING [None]
  - TINEA PEDIS [None]
